FAERS Safety Report 7073113-6 (Version None)
Quarter: 2010Q4

REPORT INFORMATION
  Report Type: 
  Country: None (occurrence: None)
  Receive Date: 20101029
  Receipt Date: 20100426
  Transmission Date: 20110411
  Serious: No
  Sender: FDA-Public Use
  Company Number: A0856760A

PATIENT
  Age: 57 Year
  Sex: Female

DRUGS (5)
  1. ADVAIR DISKUS 100/50 [Suspect]
     Indication: ASTHMA
     Dosage: 1PUFF TWICE PER DAY
     Route: 055
     Dates: start: 20100415, end: 20100422
  2. ZYRTEC [Concomitant]
  3. SINGULAIR [Concomitant]
  4. DIOVAN HCT [Concomitant]
  5. LORAZEPAM [Concomitant]

REACTIONS (1)
  - APHONIA [None]
